FAERS Safety Report 15390504 (Version 1)
Quarter: 2018Q3

REPORT INFORMATION
  Report Type: Spontaneous
  Country: IN (occurrence: IN)
  Receive Date: 20180917
  Receipt Date: 20180917
  Transmission Date: 20181010
  Serious: Yes (Other)
  Sender: FDA-Public Use
  Company Number: IN-ACCORD-071648

PATIENT
  Age: 45 Year
  Sex: Male

DRUGS (1)
  1. SIMVASTATIN. [Suspect]
     Active Substance: SIMVASTATIN
     Indication: PORTAL HYPERTENSION

REACTIONS (2)
  - Myopathy [Recovering/Resolving]
  - Myositis [Recovering/Resolving]
